FAERS Safety Report 22059591 (Version 1)
Quarter: 2023Q1

REPORT INFORMATION
  Report Type: Spontaneous
  Country: GB (occurrence: GB)
  Receive Date: 20230303
  Receipt Date: 20230303
  Transmission Date: 20230417
  Serious: No
  Sender: FDA-Public Use
  Company Number: GB-GLAXOSMITHKLINE-GBCH2023EME009188

PATIENT

DRUGS (1)
  1. LAMISIL [Suspect]
     Active Substance: TERBINAFINE HYDROCHLORIDE
     Indication: Tinea pedis
     Dosage: UNK, QD (FOR 7 DAYS)
     Route: 065

REACTIONS (2)
  - Product label confusion [Unknown]
  - Drug ineffective [Unknown]
